FAERS Safety Report 9277147 (Version 2)
Quarter: 2013Q2

REPORT INFORMATION
  Report Type: Report from Study
  Country: US (occurrence: US)
  Receive Date: 20130508
  Receipt Date: 20130613
  Transmission Date: 20140414
  Serious: Yes (Other)
  Sender: FDA-Public Use
  Company Number: US-MYLANLABS-2013S1009515

PATIENT
  Age: 15 Year
  Sex: Female

DRUGS (1)
  1. AMNESTEEM CAPSULES [Suspect]
     Dates: start: 201302, end: 2013

REACTIONS (2)
  - Suicidal ideation [Not Recovered/Not Resolved]
  - Depressive symptom [Not Recovered/Not Resolved]
